FAERS Safety Report 4998203-0 (Version None)
Quarter: 2006Q2

REPORT INFORMATION
  Report Type: 
  Country: None (occurrence: None)
  Receive Date: 20060510
  Receipt Date: 20060322
  Transmission Date: 20061013
  Serious: Yes (Life-Threatening)
  Sender: FDA-Public Use
  Company Number: DE-MERCK-0603DEU00138

PATIENT
  Age: 17 Year
  Sex: Female
  Weight: 64 kg

DRUGS (4)
  1. PRIMAXIN [Suspect]
     Indication: SEPSIS
     Route: 042
     Dates: start: 20060316, end: 20060322
  2. INDOMETHACIN [Concomitant]
     Indication: JOINT SWELLING
     Route: 048
     Dates: start: 20060311, end: 20060322
  3. ALUMINUM HYDROXIDE AND MAGNESIUM HYDROXIDE [Concomitant]
     Route: 048
     Dates: start: 20060311, end: 20060322
  4. CEFUROXIME SODIUM [Concomitant]
     Indication: TONSILLITIS
     Route: 042

REACTIONS (2)
  - HISTIOCYTOSIS HAEMATOPHAGIC [None]
  - PYREXIA [None]
